FAERS Safety Report 6620061-9 (Version None)
Quarter: 2010Q1

REPORT INFORMATION
  Report Type: 
  Country: None (occurrence: None)
  Receive Date: 20100309
  Receipt Date: 20100224
  Transmission Date: 20100710
  Serious: Yes (Other)
  Sender: FDA-Public Use
  Company Number: JP-ROCHE-688753

PATIENT
  Age: 20 Year
  Sex: Female

DRUGS (4)
  1. CELLCEPT [Suspect]
     Route: 048
  2. TACROLIMUS HYDRATE [Concomitant]
     Dosage: DOSE FORM: UNCERTAINTY
     Route: 065
  3. METHYLPREDNISOLONE [Concomitant]
     Route: 065
  4. BASILIXIMAB [Concomitant]
     Dosage: DOSE FORM: UNCERTAINTY
     Route: 065

REACTIONS (1)
  - NEPHROTIC SYNDROME [None]
